FAERS Safety Report 4955694-9 (Version None)
Quarter: 2006Q1

REPORT INFORMATION
  Report Type: 
  Country: None (occurrence: None)
  Receive Date: 20060323
  Receipt Date: 20060307
  Transmission Date: 20060701
  Serious: Yes (Other)
  Sender: FDA-Public Use
  Company Number: US172819

PATIENT
  Age: 11 Year
  Sex: Male

DRUGS (2)
  1. ENBREL [Suspect]
     Indication: JUVENILE ARTHRITIS
     Dosage: 0.4 MG/KG, 2 IN 1 WEEKS, SC
     Route: 058
  2. PREDNISOLONE [Concomitant]

REACTIONS (7)
  - CONDITION AGGRAVATED [None]
  - CONVULSION [None]
  - COUGH [None]
  - ELECTROENCEPHALOGRAM ABNORMAL [None]
  - JUVENILE ARTHRITIS [None]
  - PYREXIA [None]
  - RHINORRHOEA [None]
